FAERS Safety Report 6394962-3 (Version None)
Quarter: 2009Q4

REPORT INFORMATION
  Report Type: 
  Country: None (occurrence: None)
  Receive Date: 20091009
  Receipt Date: 20091006
  Transmission Date: 20100525
  Serious: Yes (Other)
  Sender: FDA-Public Use
  Company Number: US-BRISTOL-MYERS SQUIBB COMPANY-14808489

PATIENT
  Age: 65 Year
  Sex: Female
  Weight: 121 kg

DRUGS (11)
  1. COUMADIN [Suspect]
     Indication: THROMBOSIS
  2. BUMEX [Concomitant]
     Dates: start: 20090919
  3. GLYBURIDE [Concomitant]
  4. LAXATIVES [Concomitant]
  5. BISACODYL [Concomitant]
  6. DIOVAN [Concomitant]
  7. SINGULAIR [Concomitant]
     Dates: start: 20090701
  8. SYNTHROID [Concomitant]
  9. GABAPENTIN [Concomitant]
  10. THEOPHYLLINE [Concomitant]
  11. PREVACID [Concomitant]

REACTIONS (4)
  - AGGRESSION [None]
  - AMNESIA [None]
  - CARDIAC FAILURE CONGESTIVE [None]
  - HALLUCINATION [None]
